FAERS Safety Report 11629729 (Version 2)
Quarter: 2015Q4

REPORT INFORMATION
  Report Type: Spontaneous
  Country: BR (occurrence: BR)
  Receive Date: 20151014
  Receipt Date: 20151201
  Transmission Date: 20160304
  Serious: Yes (Other)
  Sender: FDA-Public Use
  Company Number: BR-PFIZER INC-2015339273

PATIENT
  Age: 90 Year
  Sex: Female

DRUGS (6)
  1. PRISTIQ EXTENDED RELEASE [Suspect]
     Active Substance: DESVENLAFAXINE SUCCINATE
     Indication: DEPRESSION
     Dosage: 50 MG, 1X/DAY
     Route: 048
     Dates: start: 2012
  2. VELIJA [Concomitant]
     Active Substance: DULOXETINE HYDROCHLORIDE
     Indication: DEPRESSION
     Dosage: 1 DF, 2X/DAY (MORNING AND NIGHT)
     Dates: start: 2012
  3. CYMBALTA [Concomitant]
     Active Substance: DULOXETINE HYDROCHLORIDE
     Indication: DEPRESSION
     Dosage: 1 DF, 2X/DAY (MORNING AND AT NIGHT)
     Dates: start: 2012
  4. LYRICA [Suspect]
     Active Substance: PREGABALIN
     Indication: DEPRESSION
     Dosage: 75 MG, 2X/DAY (1 TABLET IN THE MORNING AND 1 AT NIGHT)
     Route: 048
     Dates: start: 2012
  5. LORAX [Suspect]
     Active Substance: LORAZEPAM
     Indication: SLEEP DISORDER
     Dosage: 4 MG, DAILY
     Route: 048
     Dates: start: 2012
  6. DIOVAN [Concomitant]
     Active Substance: VALSARTAN
     Indication: HYPERTENSION
     Dosage: 2 DF, DAILY
     Dates: start: 2012

REACTIONS (5)
  - Activities of daily living impaired [Not Recovered/Not Resolved]
  - Thrombosis [Unknown]
  - Weight increased [Not Recovered/Not Resolved]
  - Abasia [Not Recovered/Not Resolved]
  - Bedridden [Not Recovered/Not Resolved]

NARRATIVE: CASE EVENT DATE: 2013
